FAERS Safety Report 4677725-6 (Version None)
Quarter: 2005Q2

REPORT INFORMATION
  Report Type: 
  Country: None (occurrence: None)
  Receive Date: 20050526
  Receipt Date: 20050526
  Transmission Date: 20051028
  Serious: Yes (Other)
  Sender: FDA-Public Use
  Company Number: None

PATIENT
  Age: 58 Year
  Sex: Male
  Weight: 127.0072 kg

DRUGS (8)
  1. VIOXX [Suspect]
     Indication: OSTEOARTHRITIS
     Dosage: ? DOSE/1-2 TABLETS /DAY
     Dates: start: 20000301, end: 20040701
  2. ACTOS [Concomitant]
  3. AMARYL [Concomitant]
  4. ATARAX [Concomitant]
  5. SYNTHROID [Concomitant]
  6. NEUTONTIN [Concomitant]
  7. GEMFIBROZIL [Concomitant]
  8. DOXEPIN HCL [Concomitant]

REACTIONS (8)
  - ACTIVITIES OF DAILY LIVING IMPAIRED [None]
  - BACK DISORDER [None]
  - DYSPNOEA [None]
  - LOCALISED OEDEMA [None]
  - OEDEMA PERIPHERAL [None]
  - SLEEP APNOEA SYNDROME [None]
  - WEIGHT INCREASED [None]
  - WEIGHT LOSS POOR [None]
